FAERS Safety Report 6690383-4 (Version None)
Quarter: 2010Q2

REPORT INFORMATION
  Report Type: 
  Country: None (occurrence: None)
  Receive Date: 20100420
  Receipt Date: 20100420
  Transmission Date: 20101027
  Serious: Yes (Other)
  Sender: FDA-Public Use
  Company Number: None

PATIENT
  Sex: Female
  Weight: 84.369 kg

DRUGS (1)
  1. LEVOTHYROXINE 112 MCG LANNETT [Suspect]
     Indication: HYPOTHYROIDISM
     Dosage: 112MCG DAILY PO
     Route: 048
     Dates: start: 20100322, end: 20100414

REACTIONS (2)
  - ARTHRALGIA [None]
  - PRODUCT SUBSTITUTION ISSUE [None]
